FAERS Safety Report 24094405 (Version 2)
Quarter: 2024Q3

REPORT INFORMATION
  Report Type: Spontaneous
  Country: IT (occurrence: IT)
  Receive Date: 20240716
  Receipt Date: 20240814
  Transmission Date: 20241017
  Serious: Yes (Other)
  Sender: AUROBINDO
  Company Number: IT-MINISAL02-993711

PATIENT
  Age: 54 Year
  Sex: Male

DRUGS (4)
  1. OXALIPLATIN [Suspect]
     Active Substance: OXALIPLATIN
     Indication: Gastric cancer
     Dosage: 210 MILLIGRAM
     Route: 042
     Dates: start: 20240606, end: 20240606
  2. CAPECITABINE [Concomitant]
     Active Substance: CAPECITABINE
     Indication: Product used for unknown indication
     Dosage: 3000 MILLIGRAM, ONCE A DAY (FOR 14 DAYS, FOLLOWED BY A WEEKS BREAK)
     Route: 048
     Dates: start: 20240611
  3. TRASTUZUMAB [Concomitant]
     Active Substance: TRASTUZUMAB
     Indication: Gastric cancer
     Dosage: 450 MILLIGRAM
     Route: 042
     Dates: start: 20240606
  4. PEMBROLIZUMAB [Concomitant]
     Active Substance: PEMBROLIZUMAB
     Indication: Product used for unknown indication
     Dosage: 200 MILLIGRAM
     Route: 042
     Dates: start: 20240606

REACTIONS (4)
  - Chills [Recovering/Resolving]
  - Hyperhidrosis [Recovering/Resolving]
  - Pyrexia [Recovering/Resolving]
  - Sensitisation [Recovering/Resolving]

NARRATIVE: CASE EVENT DATE: 20240606
